FAERS Safety Report 20802383 (Version 1)
Quarter: 2022Q2

REPORT INFORMATION
  Report Type: Spontaneous
  Country: US (occurrence: None)
  Receive Date: 20220506
  Receipt Date: 20220506
  Transmission Date: 20220721
  Serious: Yes (Life-Threatening)
  Sender: FDA-Public Use
  Company Number: None

PATIENT
  Age: 50 Year
  Sex: Female
  Weight: 67.5 kg

DRUGS (1)
  1. AMIODARONE [Suspect]
     Active Substance: AMIODARONE
     Indication: Supraventricular tachycardia
     Dosage: FREQUENCY : ONCE;?
     Route: 040
     Dates: start: 20220424, end: 20220424

REACTIONS (2)
  - Arrhythmia [None]
  - Cardiac arrest [None]

NARRATIVE: CASE EVENT DATE: 20220424
